FAERS Safety Report 11642192 (Version 1)
Quarter: 2015Q4

REPORT INFORMATION
  Report Type: Spontaneous
  Country: US (occurrence: US)
  Receive Date: 20151019
  Receipt Date: 20151019
  Transmission Date: 20160304
  Serious: No
  Sender: FDA-Public Use
  Company Number: US-PFIZER INC-2015320726

PATIENT
  Age: 74 Year
  Sex: Male
  Weight: 109 kg

DRUGS (1)
  1. INLYTA [Suspect]
     Active Substance: AXITINIB
     Indication: RENAL CANCER
     Dosage: 5 MG, 1X/DAY
     Dates: start: 201508

REACTIONS (2)
  - Somnolence [Recovered/Resolved]
  - Sleep apnoea syndrome [Recovered/Resolved]
